FAERS Safety Report 8877526 (Version 1)
Quarter: 2012Q4

REPORT INFORMATION
  Report Type: Spontaneous
  Country: US (occurrence: None)
  Receive Date: 20121026
  Receipt Date: 20121026
  Transmission Date: 20130627
  Serious: Yes (Other)
  Sender: FDA-Public Use
  Company Number: 2012-3980

PATIENT
  Age: 56 Year
  Sex: Female

DRUGS (8)
  1. SOMATULINE DEPOT INJECTION (60MG) (SOMATULINE) [Suspect]
     Indication: ACROMEGALY
     Dates: start: 201201, end: 201206
  2. ALLEGRA (FEXOFENADINE) [Concomitant]
  3. CRESTOR (ROSUVASTATIN) [Concomitant]
  4. FISH OIL (FISH OIL) [Concomitant]
  5. CO Q10 (UBIDECARENONE) [Concomitant]
  6. VITAMIN D (ERGOCALCIFEROL) [Concomitant]
  7. ASPIRIN (ACETYLSALICYLIC ACID) [Concomitant]
  8. MEGA VIT (VITAMINS NOS) [Concomitant]

REACTIONS (4)
  - Basedow^s disease [None]
  - Disease recurrence [None]
  - Sensory disturbance [None]
  - Tongue disorder [None]
